FAERS Safety Report 6806883-X (Version None)
Quarter: 2010Q2

REPORT INFORMATION
  Report Type: 
  Country: None (occurrence: None)
  Receive Date: 20100629
  Receipt Date: 20080607
  Transmission Date: 20101027
  Serious: No
  Sender: FDA-Public Use
  Company Number: US-PFIZER INC-2008029369

PATIENT
  Age: 55 Year
  Sex: Male

DRUGS (4)
  1. ZYVOX [Suspect]
     Indication: ENTEROCOCCAL INFECTION
     Dates: start: 20080107, end: 20080421
  2. ZYVOX [Suspect]
     Indication: PEPTOSTREPTOCOCCUS INFECTION
  3. ZYVOX [Suspect]
     Indication: STAPHYLOCOCCAL INFECTION
  4. FLUCONAZOLE [Suspect]
     Indication: CANDIDIASIS
     Route: 048

REACTIONS (2)
  - BLOOD CREATINE PHOSPHOKINASE DECREASED [None]
  - MYALGIA [None]
